FAERS Safety Report 21711567 (Version 1)
Quarter: 2022Q4

REPORT INFORMATION
  Report Type: Spontaneous
  Country: FR (occurrence: FR)
  Receive Date: 20221212
  Receipt Date: 20221212
  Transmission Date: 20230112
  Serious: Yes (Hospitalization, Other)
  Sender: FDA-Public Use
  Company Number: FR-AMGEN-FRASP2022210544

PATIENT
  Age: 73 Year
  Sex: Male

DRUGS (8)
  1. ARANESP [Suspect]
     Active Substance: DARBEPOETIN ALFA
     Indication: Anaemia
     Dosage: 150 MILLIGRAM, QWK
     Route: 058
  2. GEMCITABINE [Suspect]
     Active Substance: GEMCITABINE
     Indication: Mesothelioma malignant
     Dosage: UNK
     Route: 040
     Dates: start: 202209
  3. GEMCITABINE [Suspect]
     Active Substance: GEMCITABINE
     Dosage: CURE AT D1, D8,D15 FOLLOWING CURE AFTER 2 WEEKS
     Route: 040
     Dates: start: 20220225, end: 20220603
  4. FUROSEMIDE [Concomitant]
     Active Substance: FUROSEMIDE
     Indication: Cardiac failure acute
     Dosage: UNK
  5. SILODOSIN [Concomitant]
     Active Substance: SILODOSIN
     Indication: Prostatomegaly
     Dosage: 8 MILLIGRAM, QD
     Route: 048
  6. DUTASTERIDE [Concomitant]
     Active Substance: DUTASTERIDE
     Indication: Prostatomegaly
     Dosage: 0.5 MILLIGRAM, QD
     Route: 048
  7. COLCHICINE [Concomitant]
     Active Substance: COLCHICINE
     Indication: Cardiac failure acute
     Dosage: 0.5 MILLIGRAM, QD
     Route: 048
     Dates: start: 20220519
  8. RAMIPRIL [Concomitant]
     Active Substance: RAMIPRIL
     Indication: Hypertension
     Dosage: 2.5 MILLIGRAM, QD
     Route: 048

REACTIONS (2)
  - Oedema [Recovered/Resolved]
  - Capillary leak syndrome [Recovered/Resolved]

NARRATIVE: CASE EVENT DATE: 20220101
